FAERS Safety Report 7948502-5 (Version None)
Quarter: 2011Q4

REPORT INFORMATION
  Report Type: 
  Country: None (occurrence: None)
  Receive Date: 20111123
  Receipt Date: 20111114
  Transmission Date: 20120403
  Serious: Yes (Death, Hospitalization)
  Sender: FDA-Public Use
  Company Number: 2011MA016370

PATIENT
  Age: 43 Year
  Sex: Male
  Weight: 30 kg

DRUGS (3)
  1. FEVERALL [Suspect]
     Indication: COLITIS
     Dosage: 4 GR;QD;PO
     Route: 048
  2. HYDROCORTISONE [Suspect]
     Indication: COLITIS
     Dosage: IV
     Route: 042
  3. METRONIDAZOLE [Suspect]
     Indication: COLITIS
     Dosage: IV
     Route: 042

REACTIONS (7)
  - DRUG LEVEL INCREASED [None]
  - INTERNATIONAL NORMALISED RATIO INCREASED [None]
  - LACTIC ACIDOSIS [None]
  - CONFUSIONAL STATE [None]
  - TACHYPNOEA [None]
  - ACUTE HEPATIC FAILURE [None]
  - MULTI-ORGAN FAILURE [None]
